FAERS Safety Report 15309376 (Version 1)
Quarter: 2018Q3

REPORT INFORMATION
  Report Type: Spontaneous
  Country: US (occurrence: US)
  Receive Date: 20180823
  Receipt Date: 20180823
  Transmission Date: 20181010
  Serious: No
  Sender: FDA-Public Use
  Company Number: US-ACCORD-062813

PATIENT
  Age: 59 Year
  Sex: Female
  Weight: 68.04 kg

DRUGS (3)
  1. PROLIA [Concomitant]
     Active Substance: DENOSUMAB
     Dosage: EVERY 6 MONTHS
  2. ANASTROZOLE. [Suspect]
     Active Substance: ANASTROZOLE
     Indication: BREAST CANCER
     Route: 048
     Dates: start: 201504
  3. CALCIUM GLUCONATE. [Concomitant]
     Active Substance: CALCIUM GLUCONATE

REACTIONS (2)
  - Sleep disorder [Recovering/Resolving]
  - Bone pain [Recovering/Resolving]
